FAERS Safety Report 10214992 (Version 1)
Quarter: 2014Q2

REPORT INFORMATION
  Report Type: Spontaneous
  Country: US (occurrence: US)
  Receive Date: 20140603
  Receipt Date: 20140603
  Transmission Date: 20141212
  Serious: Yes (Hospitalization, Other)
  Sender: FDA-Public Use
  Company Number: US-ACTAVIS-2014-11460

PATIENT
  Sex: Female

DRUGS (1)
  1. PREDNISONE (WATSON LABORATORIES) [Suspect]
     Indication: SYSTEMIC LUPUS ERYTHEMATOSUS
     Dosage: UNK, UNKNOWN
     Route: 048

REACTIONS (11)
  - Systemic lupus erythematosus [Unknown]
  - Meningitis [Unknown]
  - Encephalitis [Unknown]
  - VIIth nerve paralysis [Unknown]
  - Weight increased [Not Recovered/Not Resolved]
  - Swelling face [Unknown]
  - Self esteem decreased [Unknown]
  - Depression [Not Recovered/Not Resolved]
  - Skin striae [Not Recovered/Not Resolved]
  - Psychiatric symptom [Unknown]
  - Obesity [Unknown]
